FAERS Safety Report 23672666 (Version 1)
Quarter: 2024Q1

REPORT INFORMATION
  Report Type: Report from Study
  Country: GB (occurrence: GB)
  Receive Date: 20240326
  Receipt Date: 20240326
  Transmission Date: 20240410
  Serious: Yes (Hospitalization, Other)
  Sender: FDA-Public Use
  Company Number: GB-002147023-NVSC2022GB156792

PATIENT
  Age: 3 Year
  Sex: Female
  Weight: 15.7 kg

DRUGS (1)
  1. AFINITOR [Suspect]
     Active Substance: EVEROLIMUS
     Indication: Brain stem glioma
     Dosage: 3 MG, QD (3 MG FOR DAILY FOR 6 DAYS,7TH DAY 6 MG) (CUMULATIVE WEEKLY DOSE 24 HRS.)
     Route: 048
     Dates: start: 20220527, end: 20220713

REACTIONS (8)
  - Pyrexia [Recovered/Resolved]
  - Brain stem glioma [Unknown]
  - Malignant neoplasm progression [Unknown]
  - Hypophagia [Recovered/Resolved]
  - Pharyngeal erythema [Unknown]
  - Erythema [Unknown]
  - COVID-19 [Recovered/Resolved]
  - Malaise [Recovered/Resolved]

NARRATIVE: CASE EVENT DATE: 20220707
